FAERS Safety Report 10072565 (Version 1)
Quarter: 2014Q2

REPORT INFORMATION
  Report Type: Spontaneous
  Country: US (occurrence: None)
  Receive Date: 20140410
  Receipt Date: 20140410
  Transmission Date: 20141212
  Serious: Yes (Other)
  Sender: FDA-Public Use
  Company Number: None

PATIENT
  Sex: Male
  Weight: 93.6 kg

DRUGS (11)
  1. ZYTIGA [Suspect]
     Indication: PRODUCT USED FOR UNKNOWN INDICATION
     Route: 048
     Dates: start: 20131109, end: 20140408
  2. PREDNISONE [Concomitant]
  3. PROSCAR [Concomitant]
  4. ASPIRIN [Concomitant]
  5. LIPITOR [Concomitant]
  6. PROTONIX [Concomitant]
  7. FLOMAX [Concomitant]
  8. AMOXICILLIN [Concomitant]
  9. VITD3 [Concomitant]
  10. SENNA [Concomitant]
  11. CENTRUM SILVER [Concomitant]

REACTIONS (1)
  - Cardiac disorder [None]
